FAERS Safety Report 4971751-5 (Version None)
Quarter: 2006Q2

REPORT INFORMATION
  Report Type: 
  Country: None (occurrence: None)
  Receive Date: 20060413
  Receipt Date: 20060407
  Transmission Date: 20061013
  Serious: Yes (Hospitalization)
  Sender: FDA-Public Use
  Company Number: FR-AVENTIS-200611283FR

PATIENT
  Age: 55 Year
  Sex: Male

DRUGS (1)
  1. ARAVA [Suspect]
     Indication: RHEUMATOID ARTHRITIS
     Route: 048
     Dates: end: 20060217

REACTIONS (7)
  - EPIDURITIS [None]
  - LIVER ABSCESS [None]
  - MENINGITIS [None]
  - PULMONARY EMBOLISM [None]
  - QUADRIPLEGIA [None]
  - STAPHYLOCOCCAL INFECTION [None]
  - SUBCUTANEOUS ABSCESS [None]
